FAERS Safety Report 5374094-3 (Version None)
Quarter: 2007Q2

REPORT INFORMATION
  Report Type: 
  Country: None (occurrence: None)
  Receive Date: 20070627
  Receipt Date: 20070613
  Transmission Date: 20071010
  Serious: No
  Sender: FDA-Public Use
  Company Number: 2007-023

PATIENT
  Sex: Male

DRUGS (1)
  1. LIDOCAINE HCL [Suspect]
     Indication: LOCAL ANAESTHESIA
     Dosage: 160 MG PRN

REACTIONS (3)
  - DEVICE BREAKAGE [None]
  - FOREIGN BODY TRAUMA [None]
  - POST PROCEDURAL COMPLICATION [None]
